FAERS Safety Report 8298550-3 (Version None)
Quarter: 2012Q2

REPORT INFORMATION
  Report Type: 
  Country: None (occurrence: None)
  Receive Date: 20120419
  Receipt Date: 20120327
  Transmission Date: 20120825
  Serious: Yes (Hospitalization)
  Sender: FDA-Public Use
  Company Number: JP-PFIZER INC-2011233371

PATIENT
  Age: 60 Year
  Sex: Female

DRUGS (16)
  1. PREDNISOLONE [Suspect]
     Dosage: 10 MG/M2, UNK
     Route: 042
     Dates: start: 20110701
  2. CYTARABINE [Concomitant]
     Indication: ADULT T-CELL LYMPHOMA/LEUKAEMIA
     Dosage: 40 MG/M2 X 1/4 WEEK
     Route: 041
     Dates: start: 20110703
  3. DOXORUBICIN HYDROCHLORIDE [Suspect]
     Indication: ADULT T-CELL LYMPHOMA/LEUKAEMIA
     Dosage: 40 MG/M2 X 1/4WEEK
     Route: 041
     Dates: start: 20110414
  4. KW-0761 [Suspect]
     Indication: ADULT T-CELL LYMPHOMA/LEUKAEMIA
     Dosage: 1 MG/M2, UNK
     Dates: start: 20110415
  5. PREDNISOLONE [Suspect]
     Dosage: 40 MG/M2, UNK
     Route: 048
     Dates: start: 20110516
  6. CYMERIN [Suspect]
     Indication: ADULT T-CELL LYMPHOMA/LEUKAEMIA
     Dosage: 60 MG/M2 X 1/4 WEEK
     Route: 041
     Dates: start: 20110509
  7. PARAPLATIN AQ [Suspect]
     Indication: ADULT T-CELL LYMPHOMA/LEUKAEMIA
     Dosage: 250 MG/M2 X 1/4 WEEK
     Route: 041
     Dates: start: 20110516
  8. CYCLOPHOSPHAMIDE [Suspect]
     Indication: ADULT T-CELL LYMPHOMA/LEUKAEMIA
     Dosage: 350 MG/M2 X 1/4WEEK
     Route: 041
     Dates: start: 20110414
  9. DOXORUBICIN HYDROCHLORIDE [Suspect]
     Dosage: 30 MG/M2 X 1/4WEEK
     Route: 041
     Dates: start: 20110509
  10. METHOTREXATE SODIUM [Suspect]
     Indication: ADULT T-CELL LYMPHOMA/LEUKAEMIA
     Dosage: 15 MG/M2 X 1/4 WEEK
     Route: 041
     Dates: start: 20110703
  11. KW-0761 [Suspect]
     Dosage: 1 MG/M2, UNK
     Dates: start: 20110514
  12. FILDESIN [Suspect]
     Indication: ADULT T-CELL LYMPHOMA/LEUKAEMIA
     Dosage: 2.4 MG/M2 X 1/4 WEEK
     Route: 042
     Dates: start: 20110516
  13. ETOPOSIDE [Suspect]
     Indication: ADULT T-CELL LYMPHOMA/LEUKAEMIA
     Dosage: 100 MG/M2 X 1/4 WEEK
     Route: 041
     Dates: start: 20110516
  14. PREDNISOLONE [Suspect]
     Indication: ADULT T-CELL LYMPHOMA/LEUKAEMIA
     Dosage: 40 MG/M2, UNK
     Route: 048
     Dates: start: 20110414
  15. ONCOVIN [Suspect]
     Indication: ADULT T-CELL LYMPHOMA/LEUKAEMIA
     Dosage: 1 MG/M2 X 1/4 WEEK
     Route: 042
     Dates: start: 20110414
  16. PREDNISOLONE [Suspect]
     Dosage: 40 MG/M2, UNK
     Route: 048
     Dates: start: 20110509

REACTIONS (3)
  - CHOLECYSTITIS [None]
  - VIRAL HAEMORRHAGIC CYSTITIS [None]
  - ILEUS PARALYTIC [None]
